FAERS Safety Report 5662716-9 (Version None)
Quarter: 2008Q1

REPORT INFORMATION
  Report Type: 
  Country: None (occurrence: None)
  Receive Date: 20080313
  Receipt Date: 20080309
  Transmission Date: 20080703
  Serious: Yes (Death)
  Sender: FDA-Public Use
  Company Number: IL-NOVOPROD-272982

PATIENT
  Age: 20 Year
  Sex: Male

DRUGS (1)
  1. NOVOSEVEN [Suspect]
     Indication: HAEMORRHAGE
     Dates: start: 20080305

REACTIONS (1)
  - MULTI-ORGAN FAILURE [None]
